FAERS Safety Report 4701728-6 (Version None)
Quarter: 2005Q2

REPORT INFORMATION
  Report Type: 
  Country: None (occurrence: None)
  Receive Date: 20050627
  Receipt Date: 20050620
  Transmission Date: 20051028
  Serious: Yes (Hospitalization)
  Sender: FDA-Public Use
  Company Number: 2005-06-1229

PATIENT
  Age: 20 Year
  Sex: Male

DRUGS (2)
  1. AERIUS            (DESLORATADINE) [Suspect]
     Indication: HYPERSENSITIVITY
     Dosage: SEE IMAGE
     Route: 048
  2. ALCOHOL [Suspect]
     Dosage: A FEW BEERS ORAL
     Route: 048
     Dates: start: 20050618, end: 20050618

REACTIONS (3)
  - ALCOHOL USE [None]
  - CHEST PAIN [None]
  - FATIGUE [None]
